FAERS Safety Report 7629546-X (Version None)
Quarter: 2011Q3

REPORT INFORMATION
  Report Type: 
  Country: None (occurrence: None)
  Receive Date: 20110722
  Receipt Date: 20110414
  Transmission Date: 20111222
  Serious: No
  Sender: FDA-Public Use
  Company Number: US-BAYER-2011-032914

PATIENT
  Age: 44 Year
  Sex: Female
  Weight: 63.492 kg

DRUGS (4)
  1. VITAMIN D [Concomitant]
  2. IBUPROFEN [Concomitant]
  3. BETASERON [Suspect]
     Dosage: 0.25 MG, QOD
     Route: 058
  4. GLUCO/CHONDR CAP COMPLEX [Concomitant]

REACTIONS (3)
  - INJECTION SITE MASS [None]
  - MIDDLE INSOMNIA [None]
  - INJECTION SITE PAIN [None]
